FAERS Safety Report 6025092-8 (Version None)
Quarter: 2008Q4

REPORT INFORMATION
  Report Type: 
  Country: None (occurrence: None)
  Receive Date: 20081231
  Receipt Date: 20081223
  Transmission Date: 20090506
  Serious: Yes (Other)
  Sender: FDA-Public Use
  Company Number: US-WYE-H07397008

PATIENT
  Age: 79 Year
  Sex: Male
  Weight: 72.64 kg

DRUGS (5)
  1. PRISTIQ [Suspect]
     Indication: DEPRESSION
     Route: 048
     Dates: start: 20081218
  2. ASPIRIN [Concomitant]
  3. XALATAN [Concomitant]
     Indication: GLAUCOMA
     Dosage: UNKNOWN
  4. FLOMAX [Concomitant]
     Indication: PROSTATIC DISORDER
     Dosage: UNKNOWN
  5. ZOCOR [Concomitant]
     Dosage: UNKNOWN

REACTIONS (4)
  - ASTHENIA [None]
  - CONDITION AGGRAVATED [None]
  - DEPRESSION [None]
  - SUICIDAL IDEATION [None]
